FAERS Safety Report 17511840 (Version 2)
Quarter: 2020Q1

REPORT INFORMATION
  Report Type: Spontaneous
  Country: FR (occurrence: FR)
  Receive Date: 20200307
  Receipt Date: 20200319
  Transmission Date: 20200409
  Serious: Yes (Hospitalization)
  Sender: FDA-Public Use
  Company Number: FR-ACCORD-174779

PATIENT
  Age: 85 Year
  Sex: Male
  Weight: 72 kg

DRUGS (6)
  1. PANTOPRAZOLE [Concomitant]
     Active Substance: PANTOPRAZOLE
  2. KARDEGIC [Concomitant]
     Active Substance: ASPIRIN DL-LYSINE
     Dosage: STRENGTH:75 MG POWDER FOR ORAL SOLUTION IN SACHET-DOSE
  3. TERALITHE [Interacting]
     Active Substance: LITHIUM CARBONATE
     Indication: DEPRESSION
     Dosage: STRENGTH:400 MG, PROLONGED-RELEASE SCORED TABLET
     Route: 048
     Dates: end: 20200113
  4. SPAGULAX PURE MUCILAGE, GRANULES [Concomitant]
  5. HYDROCHLOROTHIAZIDE. [Suspect]
     Active Substance: HYDROCHLOROTHIAZIDE
     Indication: HYPERTENSION
     Route: 048
     Dates: end: 20200113
  6. TELMISARTAN. [Interacting]
     Active Substance: TELMISARTAN
     Indication: HYPERTENSION
     Route: 048
     Dates: end: 20200113

REACTIONS (4)
  - Hyperparathyroidism [Not Recovered/Not Resolved]
  - Confusional state [Recovered/Resolved]
  - Drug interaction [Unknown]
  - Hypercalcaemia [Recovering/Resolving]

NARRATIVE: CASE EVENT DATE: 20200106
